FAERS Safety Report 6343774-5 (Version None)
Quarter: 2009Q3

REPORT INFORMATION
  Report Type: 
  Country: None (occurrence: None)
  Receive Date: 20090908
  Receipt Date: 20090828
  Transmission Date: 20100115
  Serious: Yes (Hospitalization, Disabling)
  Sender: FDA-Public Use
  Company Number: B0589098A

PATIENT
  Sex: Female
  Weight: 75 kg

DRUGS (16)
  1. AVANDAMET [Suspect]
     Route: 048
     Dates: start: 20051001, end: 20090501
  2. DICLOFENAC DIETHYLAMMONIUM [Concomitant]
  3. TRAMADOL MR [Concomitant]
  4. UNKNOWN [Concomitant]
  5. SIMVASTATIN [Concomitant]
  6. SALMETEROL [Concomitant]
     Dosage: 2PUFF TWICE PER DAY
     Route: 055
  7. BECONASE [Concomitant]
     Dosage: 2PUFF TWICE PER DAY
     Route: 045
  8. LEVOTHYROXINE SODIUM [Concomitant]
     Dosage: 100MCG PER DAY
  9. FUROSEMIDE [Concomitant]
     Dosage: 40MG IN THE MORNING
  10. RAMIPRIL [Concomitant]
     Dosage: 2.5MG PER DAY
  11. LANSOPRAZOLE [Concomitant]
     Dosage: 15MG IN THE MORNING
  12. FLUOXETINE [Concomitant]
     Dosage: 20MG PER DAY
  13. CLENIL MODULITE [Concomitant]
     Dosage: 1PUFF TWICE PER DAY
     Route: 055
  14. SALBUTAMOL [Concomitant]
     Dosage: 2PUFF AS REQUIRED
     Route: 055
  15. PROCHLORPERAZINE MALEATE [Concomitant]
     Dosage: 1TAB THREE TIMES PER DAY
  16. GLICLAZIDE [Concomitant]
     Dosage: 40MG TWICE PER DAY

REACTIONS (3)
  - HIP FRACTURE [None]
  - OSTEOPENIA [None]
  - WRIST FRACTURE [None]
